FAERS Safety Report 9177772 (Version 1)
Quarter: 2013Q1

REPORT INFORMATION
  Report Type: Spontaneous
  Country: US (occurrence: None)
  Receive Date: 20130319
  Receipt Date: 20130319
  Transmission Date: 20140127
  Serious: Yes (Hospitalization, Congenital Anomaly, Other)
  Sender: FDA-Public Use
  Company Number: USA/USA/13/0028465

PATIENT
  Sex: Male

DRUGS (2)
  1. FLUOXETINE (FLUOXETINE) [Suspect]
     Indication: DEPRESSION
  2. PROZAC (FLUOXETINE HYDROCHLORIDE) [Suspect]
     Indication: DEPRESSION

REACTIONS (3)
  - Maternal drugs affecting foetus [None]
  - Cleft lip and palate [None]
  - Neonatal aspiration [None]
